FAERS Safety Report 4686742-1 (Version None)
Quarter: 2005Q2

REPORT INFORMATION
  Report Type: 
  Country: None (occurrence: None)
  Receive Date: 20050606
  Receipt Date: 20050524
  Transmission Date: 20051028
  Serious: Yes (Life-Threatening, Hospitalization, Disabling)
  Sender: FDA-Public Use
  Company Number: SGB1-2005-00213

PATIENT
  Age: 73 Year
  Sex: Female
  Weight: 47 kg

DRUGS (4)
  1. MIDODRINE(MIDODRINE) TABLET [Suspect]
     Indication: ORTHOSTATIC HYPOTENSION
     Dosage: 10 MG, 3X/DAY: TID
     Dates: start: 20000809, end: 20050101
  2. FLUDROCROTISONE (FLUDROCORTISONE) [Concomitant]
  3. RIVASTIGMINE TARTRATE [Concomitant]
  4. CARBAMAZEPINE [Concomitant]

REACTIONS (1)
  - HYPERTENSION [None]
